FAERS Safety Report 9196928 (Version 1)
Quarter: 2013Q1

REPORT INFORMATION
  Report Type: Spontaneous
  Country: US (occurrence: US)
  Receive Date: 20130328
  Receipt Date: 20130328
  Transmission Date: 20140127
  Serious: No
  Sender: FDA-Public Use
  Company Number: US-PFIZER INC-2013096016

PATIENT
  Age: 59 Year
  Sex: Female
  Weight: 90.7 kg

DRUGS (4)
  1. INLYTA [Suspect]
     Indication: METASTATIC RENAL CELL CARCINOMA
     Dosage: 5 MG, EVERY 12 HOURS
     Dates: start: 20130226
  2. INLYTA [Suspect]
     Indication: RENAL CANCER
     Dosage: 5 MG, 2X/DAY
     Dates: start: 20130301, end: 20130321
  3. HYTRIN [Concomitant]
     Indication: HYPERTENSION
     Dosage: 2 MG, 1X/DAY
  4. SYNTHROID [Concomitant]
     Indication: THYROID DISORDER
     Dosage: 125 UG, UNK

REACTIONS (3)
  - Constipation [Recovering/Resolving]
  - Haemoptysis [Recovering/Resolving]
  - Headache [Unknown]
